FAERS Safety Report 7727175-0 (Version None)
Quarter: 2011Q3

REPORT INFORMATION
  Report Type: 
  Country: None (occurrence: None)
  Receive Date: 20110831
  Receipt Date: 20110816
  Transmission Date: 20111222
  Serious: Yes (Life-Threatening, Other)
  Sender: FDA-Public Use
  Company Number: 2011MA012009

PATIENT
  Age: 35 Year
  Sex: Female

DRUGS (3)
  1. AMITRIPTYLINE HCL [Suspect]
     Dosage: 50 MG;HS
  2. IBUPROFEN [Suspect]
     Dosage: 3.2 GM;QD
  3. CODEINE SULFATE [Suspect]

REACTIONS (4)
  - INTENTIONAL DRUG MISUSE [None]
  - HYPOKALAEMIA [None]
  - METABOLIC ACIDOSIS [None]
  - RENAL TUBULAR ACIDOSIS [None]
